FAERS Safety Report 9631843 (Version 5)
Quarter: 2013Q4

REPORT INFORMATION
  Report Type: Report from Study
  Country: JP (occurrence: JP)
  Receive Date: 20131018
  Receipt Date: 20131112
  Transmission Date: 20140711
  Serious: Yes (Hospitalization, Other)
  Sender: FDA-Public Use
  Company Number: JP-SA-2013SA104229

PATIENT
  Age: 76 Year
  Sex: Male
  Weight: 53.8 kg

DRUGS (14)
  1. DOCETAXEL [Suspect]
     Indication: PROSTATE CANCER METASTATIC
     Route: 042
     Dates: start: 20121116, end: 20121116
  2. DOCETAXEL [Suspect]
     Indication: PROSTATE CANCER METASTATIC
     Route: 042
     Dates: start: 20130513, end: 20130513
  3. DOCETAXEL [Suspect]
     Indication: PROSTATE CANCER METASTATIC
     Route: 042
     Dates: start: 20130919, end: 20130919
  4. PREDNISOLONE [Suspect]
     Indication: PROSTATE CANCER METASTATIC
     Route: 048
     Dates: start: 20121116, end: 20131009
  5. HARNAL [Concomitant]
     Route: 048
     Dates: start: 200812
  6. NAUZELIN [Concomitant]
     Indication: PROPHYLAXIS
     Route: 048
     Dates: start: 20121108
  7. GASMOTIN [Concomitant]
     Indication: PROPHYLAXIS
     Route: 048
     Dates: start: 20121108
  8. TAKEPRON OD [Concomitant]
     Indication: PROPHYLAXIS
     Route: 048
     Dates: start: 20121108
  9. MARZULENE [Concomitant]
     Route: 048
     Dates: start: 20121113
  10. METHYCOBAL [Concomitant]
     Route: 048
     Dates: start: 20130422
  11. KARY UNI [Concomitant]
     Route: 047
     Dates: start: 20130522
  12. LEUPLIN [Concomitant]
  13. SALICYLIC ACID [Concomitant]
     Route: 061
     Dates: start: 20130422, end: 20130623
  14. SENNOSIDE A [Concomitant]
     Route: 048
     Dates: start: 20130513, end: 20130522

REACTIONS (1)
  - Cataract subcapsular [Recovered/Resolved]
